FAERS Safety Report 5427805-2 (Version None)
Quarter: 2007Q3

REPORT INFORMATION
  Report Type: 
  Country: None (occurrence: None)
  Receive Date: 20070824
  Receipt Date: 20070813
  Transmission Date: 20080115
  Serious: Yes (Hospitalization)
  Sender: FDA-Public Use
  Company Number: 232077K07USA

PATIENT
  Age: 21 Year
  Sex: Female

DRUGS (2)
  1. REBIF [Suspect]
     Indication: MULTIPLE SCLEROSIS
     Dosage: 44 MCG, 3 IN 1 WEEKS, SUBCUTANEOUS
     Route: 058
     Dates: start: 20070110, end: 20070301
  2. INSULIN (INSULIN) [Concomitant]

REACTIONS (4)
  - CONDITION AGGRAVATED [None]
  - MULTIPLE SCLEROSIS [None]
  - PAIN [None]
  - RECTAL ULCER [None]
